FAERS Safety Report 14824625 (Version 1)
Quarter: 2018Q2

REPORT INFORMATION
  Report Type: Report from Study
  Country: None (occurrence: LU)
  Receive Date: 20180429
  Receipt Date: 20180429
  Transmission Date: 20180711
  Serious: Yes (Death)
  Sender: FDA-Public Use
  Company Number: LU-ABBVIE-17K-098-2145507-00

PATIENT
  Sex: Male

DRUGS (10)
  1. DUODOPA [Suspect]
     Active Substance: CARBIDOPA\LEVODOPA
     Dosage: MD=2.5ML?CD=2.9ML/HR DURING 16HRS?ED=2ML
     Route: 050
     Dates: start: 20180205, end: 20180316
  2. XATRAL [Concomitant]
     Active Substance: ALFUZOSIN
     Indication: PRODUCT USED FOR UNKNOWN INDICATION
  3. MAGNE B6 [Concomitant]
     Active Substance: MAGNESIUM\PYRIDOXINE
     Indication: PRODUCT USED FOR UNKNOWN INDICATION
  4. AVODART [Concomitant]
     Active Substance: DUTASTERIDE
     Indication: PRODUCT USED FOR UNKNOWN INDICATION
  5. DUODOPA [Suspect]
     Active Substance: CARBIDOPA\LEVODOPA
     Dosage: MD=4ML?CD=3.9 UP TO 5 ML/HR DURING 16 HRS?EDA=3 UP TO 5 ML?ND=ML/HR DURING 8HRS
     Route: 050
     Dates: start: 20171016, end: 20171020
  6. DUODOPA [Suspect]
     Active Substance: CARBIDOPA\LEVODOPA
     Dosage: MD=4ML??CD=3.9ML/HR DURING 16HRS ??EDA=3ML
     Route: 050
     Dates: start: 20171020, end: 20180205
  7. XANAX [Concomitant]
     Active Substance: ALPRAZOLAM
     Indication: PRODUCT USED FOR UNKNOWN INDICATION
  8. ASAFLOW [Concomitant]
     Active Substance: ASPIRIN
     Indication: PRODUCT USED FOR UNKNOWN INDICATION
  9. DUODOPA [Suspect]
     Active Substance: CARBIDOPA\LEVODOPA
     Indication: PARKINSON^S DISEASE
     Dosage: MD=2ML??CD=3.9ML/HR DURING 16HRS ??EDA=3ML??ND=2.5ML/HR DURING 8HRS
     Route: 050
     Dates: start: 20170928, end: 20171016
  10. DUODOPA [Suspect]
     Active Substance: CARBIDOPA\LEVODOPA
     Dosage: MD: 2.5 ML?CD: 1.9 ML/HR DURING 16HRS?ED: 2 ML
     Route: 050
     Dates: start: 20180316

REACTIONS (6)
  - General physical health deterioration [Fatal]
  - Confusional state [Unknown]
  - Parkinson^s disease [Not Recovered/Not Resolved]
  - Incorrect route of drug administration [Unknown]
  - Aggression [Not Recovered/Not Resolved]
  - Intentional medical device removal by patient [Not Recovered/Not Resolved]

NARRATIVE: CASE EVENT DATE: 2017
